FAERS Safety Report 9078656 (Version 1)
Quarter: 2013Q1

REPORT INFORMATION
  Report Type: Report from Study
  Country: US (occurrence: US)
  Receive Date: 20130130
  Receipt Date: 20130130
  Transmission Date: 20140127
  Serious: Yes (Hospitalization, Other)
  Sender: FDA-Public Use
  Company Number: US-ABBOTT-12P-163-0958380-00

PATIENT
  Age: 26 Year
  Sex: Female

DRUGS (4)
  1. HUMIRA 40 MG/0.8 ML PEN [Suspect]
     Indication: CROHN^S DISEASE
     Dates: start: 20120622
  2. PREDNISONE [Concomitant]
     Indication: CROHN^S DISEASE
     Dosage: LAST DOSE OF TAPER
     Dates: end: 20120720
  3. IMURAN [Concomitant]
     Indication: CROHN^S DISEASE
     Dosage: 125 MG DAILY
  4. ATIVAN [Concomitant]
     Indication: ANXIETY

REACTIONS (4)
  - Kidney infection [Recovered/Resolved]
  - Renal artery stent removal [Unknown]
  - Migraine [Recovered/Resolved]
  - Vomiting [Unknown]
